FAERS Safety Report 8609640-7 (Version None)
Quarter: 2012Q3

REPORT INFORMATION
  Report Type: 
  Country: None (occurrence: None)
  Receive Date: 20120821
  Receipt Date: 20120809
  Transmission Date: 20120928
  Serious: Yes (Hospitalization)
  Sender: FDA-Public Use
  Company Number: US-ACTELION-A-NJ2012-66137

PATIENT
  Age: 75 Year
  Sex: Female

DRUGS (5)
  1. TRACLEER [Suspect]
     Indication: PULMONARY ARTERIAL HYPERTENSION
     Dosage: UNK
     Route: 048
  2. TYVASO [Concomitant]
  3. COUMADIN [Concomitant]
  4. LASIX [Concomitant]
  5. SILDENAFIL [Concomitant]

REACTIONS (7)
  - CARDIAC FAILURE CONGESTIVE [None]
  - OEDEMA [None]
  - HAEMORRHAGE [None]
  - PLEURAL EFFUSION [None]
  - BLOOD POTASSIUM ABNORMAL [None]
  - BLOOD POTASSIUM INCREASED [None]
  - INTERNATIONAL NORMALISED RATIO FLUCTUATION [None]
